FAERS Safety Report 8576283-3 (Version None)
Quarter: 2012Q3

REPORT INFORMATION
  Report Type: 
  Country: None (occurrence: None)
  Receive Date: 20120724
  Receipt Date: 20120717
  Transmission Date: 20120928
  Serious: Yes (Other)
  Sender: FDA-Public Use
  Company Number: CIP-2012-00232

PATIENT

DRUGS (2)
  1. IRINOTECAN HCL [Suspect]
     Indication: BRAIN NEOPLASM
  2. BEVACIZUMAB (BEVACIZUMAB) [Suspect]
     Indication: BRAIN NEOPLASM
     Dosage: 5-10 MG/KG (EVERY TWO WEEKS)

REACTIONS (1)
  - PROTEINURIA [None]
